FAERS Safety Report 13419447 (Version 2)
Quarter: 2018Q1

REPORT INFORMATION
  Report Type: Spontaneous
  Country: US (occurrence: US)
  Receive Date: 20170407
  Receipt Date: 20180111
  Transmission Date: 20180508
  Serious: No
  Sender: FDA-Public Use
  Company Number: US-JNJFOC-20170323200

PATIENT
  Sex: Male

DRUGS (2)
  1. RISPERDAL [Suspect]
     Active Substance: RISPERIDONE
     Indication: ATTENTION DEFICIT/HYPERACTIVITY DISORDER
     Dosage: VARYING DOSES OF 01 MG AND 02 MG
     Route: 048
     Dates: start: 200409, end: 200905
  2. RISPERDAL [Suspect]
     Active Substance: RISPERIDONE
     Indication: ABNORMAL BEHAVIOUR
     Dosage: VARYING DOSES OF 01 MG AND 02 MG
     Route: 048
     Dates: start: 200409, end: 200905

REACTIONS (4)
  - Abnormal weight gain [Unknown]
  - Emotional disorder [Unknown]
  - Gynaecomastia [Unknown]
  - Hyperglycaemia [Unknown]
